FAERS Safety Report 10419423 (Version 5)
Quarter: 2015Q3

REPORT INFORMATION
  Report Type: Report from Study
  Country: CA (occurrence: CA)
  Receive Date: 20140829
  Receipt Date: 20150810
  Transmission Date: 20151125
  Serious: Yes (Other)
  Sender: FDA-Public Use
  Company Number: PHHY2013CA028444

PATIENT
  Sex: Male

DRUGS (6)
  1. GLEEVEC [Suspect]
     Active Substance: IMATINIB MESYLATE
     Dosage: 300 MG, QD
     Route: 048
  2. CODEINE [Concomitant]
     Active Substance: CODEINE
     Indication: PRODUCT USED FOR UNKNOWN INDICATION
     Route: 065
  3. ANACIN (ASPIRIN\CAFFEINE) [Concomitant]
     Active Substance: ASPIRIN\CAFFEINE
     Indication: PRODUCT USED FOR UNKNOWN INDICATION
     Route: 065
  4. TECTA [Concomitant]
     Active Substance: PANTOPRAZOLE MAGNESIUM
     Indication: GASTRIC DISORDER
     Route: 065
  5. GLEEVEC [Suspect]
     Active Substance: IMATINIB MESYLATE
     Indication: GASTROINTESTINAL STROMAL TUMOUR
     Dosage: 400 MG, QD
     Route: 048
     Dates: start: 20111129
  6. CRESTOR [Concomitant]
     Active Substance: ROSUVASTATIN CALCIUM
     Indication: PRODUCT USED FOR UNKNOWN INDICATION
     Route: 065

REACTIONS (26)
  - Blood disorder [Unknown]
  - Fatigue [Unknown]
  - Flatulence [Unknown]
  - Haemoglobin decreased [Recovering/Resolving]
  - Face oedema [Unknown]
  - Muscle spasms [Unknown]
  - Pain in extremity [Unknown]
  - Impaired driving ability [Unknown]
  - Dry skin [Unknown]
  - Asthma [Unknown]
  - Abdominal distension [Unknown]
  - Vomiting [Recovered/Resolved]
  - Rash [Unknown]
  - Dyspnoea [Not Recovered/Not Resolved]
  - Nausea [Unknown]
  - Chest pain [Unknown]
  - Arthritis [Unknown]
  - Gait disturbance [Unknown]
  - Weight increased [Unknown]
  - Fluid retention [Unknown]
  - Pruritus [Unknown]
  - Chest discomfort [Not Recovered/Not Resolved]
  - Oedema peripheral [Unknown]
  - Gastric disorder [Unknown]
  - Palpitations [Unknown]
  - Constipation [Unknown]
